FAERS Safety Report 9198112 (Version 1)
Quarter: 2013Q1

REPORT INFORMATION
  Report Type: Spontaneous
  Country: US (occurrence: US)
  Receive Date: 20130329
  Receipt Date: 20130329
  Transmission Date: 20140127
  Serious: Yes (Other)
  Sender: FDA-Public Use
  Company Number: US-ELI_LILLY_AND_COMPANY-US201303008708

PATIENT
  Sex: Female

DRUGS (3)
  1. PEMETREXED [Suspect]
     Indication: NON-SMALL CELL LUNG CANCER
     Dosage: 500 MG/M2, OTHER
     Route: 042
  2. AFLIBERCEPT [Concomitant]
     Indication: NON-SMALL CELL LUNG CANCER
     Dosage: 6 MG/KG, UNK
     Route: 042
  3. CISPLATIN [Concomitant]
     Indication: NON-SMALL CELL LUNG CANCER
     Dosage: 75 MG/M2, OTHER
     Route: 042

REACTIONS (3)
  - Posterior reversible encephalopathy syndrome [Unknown]
  - Blood pressure increased [Unknown]
  - Creatinine renal clearance decreased [Unknown]
